FAERS Safety Report 24341988 (Version 3)
Quarter: 2024Q4

REPORT INFORMATION
  Report Type: Spontaneous
  Country: US (occurrence: None)
  Receive Date: 20240920
  Receipt Date: 20241129
  Transmission Date: 20250115
  Serious: Yes (Other)
  Sender: ORION
  Company Number: US-MLMSERVICE-20240911-PI181883-00080-2

PATIENT
  Age: 73 Year
  Sex: Male
  Weight: 72.1 kg

DRUGS (4)
  1. STALEVO [Suspect]
     Active Substance: CARBIDOPA\ENTACAPONE\LEVODOPA
     Indication: Parkinson^s disease
     Dosage: STRENGTH: L-C-E: 37.5-150-200 MG FOUR TIMES DAILY
  2. SINEMET [Suspect]
     Active Substance: CARBIDOPA\LEVODOPA
     Indication: Parkinson^s disease
     Dosage: 100-25 MG
  3. SINEMET [Suspect]
     Active Substance: CARBIDOPA\LEVODOPA
     Dosage: 100-25 MG
  4. ROPINIROLE [Concomitant]
     Active Substance: ROPINIROLE
     Indication: Parkinson^s disease

REACTIONS (2)
  - Hallucination [Recovered/Resolved]
  - Hypersexuality [Recovered/Resolved]
